FAERS Safety Report 7002810-3 (Version None)
Quarter: 2010Q3

REPORT INFORMATION
  Report Type: 
  Country: None (occurrence: None)
  Receive Date: 20100920
  Receipt Date: 20100914
  Transmission Date: 20110219
  Serious: Yes (Hospitalization)
  Sender: FDA-Public Use
  Company Number: CHPA2010US14699

PATIENT
  Age: 5 Year
  Sex: Male
  Weight: 16.327 kg

DRUGS (1)
  1. TRIAMINIC DAY TIME COLD + COUGH (NCH) [Suspect]
     Dosage: ONE WHOLE BOTTLE, ONCE
     Route: 048
     Dates: start: 20100914, end: 20100914

REACTIONS (3)
  - ACCIDENTAL DRUG INTAKE BY CHILD [None]
  - ACCIDENTAL OVERDOSE [None]
  - HOSPITALISATION [None]
